FAERS Safety Report 13542678 (Version 1)
Quarter: 2017Q2

REPORT INFORMATION
  Report Type: Spontaneous
  Country: US (occurrence: US)
  Receive Date: 20170512
  Receipt Date: 20170512
  Transmission Date: 20170830
  Serious: Yes (Other)
  Sender: FDA-Public Use
  Company Number: US-ROCHE-771870

PATIENT
  Age: 85 Year
  Sex: Female

DRUGS (3)
  1. RETINAVITES [Concomitant]
     Dosage: DOSE FORM: PILL
     Route: 065
  2. ARTIFICIAL TEARS NOS [Concomitant]
     Active Substance: GLYCERIN\HYPROMELLOSE 2910 (15 MPA.S)\PETROLATUM OR POLYVINYL ALCOHOL\POLYETHYLENE GLYCOL 400 OR MINERAL OIL\POVIDONE OR PROPYLENE GLYCOL
     Route: 065
  3. AVASTIN [Suspect]
     Active Substance: BEVACIZUMAB
     Indication: NEOVASCULAR AGE-RELATED MACULAR DEGENERATION
     Dosage: LAST INJUECTION: 08 APRIL 2011,AVASTIN 100MG, DOSE: 1.25MG/0.05CC?FREQUENCY: ONCE.
     Route: 050

REACTIONS (4)
  - Blindness [Unknown]
  - Product quality issue [Unknown]
  - Iritis [Recovering/Resolving]
  - Visual impairment [Unknown]

NARRATIVE: CASE EVENT DATE: 20110411
